FAERS Safety Report 14422592 (Version 1)
Quarter: 2018Q1

REPORT INFORMATION
  Report Type: Spontaneous
  Country: FR (occurrence: FR)
  Receive Date: 20180123
  Receipt Date: 20180123
  Transmission Date: 20180509
  Serious: Yes (Hospitalization)
  Sender: FDA-Public Use
  Company Number: FR-GILEAD-2018-0316268

PATIENT
  Age: 53 Year
  Sex: Male

DRUGS (1)
  1. EPCLUSA [Suspect]
     Active Substance: SOFOSBUVIR\VELPATASVIR
     Indication: CHRONIC HEPATITIS C
     Dosage: UNK
     Route: 065
     Dates: start: 201711, end: 201801

REACTIONS (5)
  - Hypoproteinaemia [Unknown]
  - Hypernatraemia [Recovered/Resolved]
  - Creatinine renal clearance decreased [Recovered/Resolved]
  - Dehydration [Recovered/Resolved]
  - Hyperosmolar state [Recovered/Resolved]

NARRATIVE: CASE EVENT DATE: 20180102
